FAERS Safety Report 6403268-5 (Version None)
Quarter: 2009Q4

REPORT INFORMATION
  Report Type: 
  Country: None (occurrence: None)
  Receive Date: 20091016
  Receipt Date: 20091007
  Transmission Date: 20100525
  Serious: Yes (Other)
  Sender: FDA-Public Use
  Company Number: JP-ASTRAZENECA-2009SE19979

PATIENT
  Age: 27619 Day
  Sex: Male

DRUGS (8)
  1. SEROQUEL [Suspect]
     Indication: INSOMNIA
     Route: 048
     Dates: start: 20090710, end: 20090711
  2. SEROQUEL [Suspect]
     Route: 048
     Dates: start: 20090711
  3. SEROQUEL [Suspect]
     Route: 048
     Dates: start: 20090930
  4. GRAMALIL [Suspect]
     Indication: AFFECT LABILITY
     Route: 048
     Dates: start: 20090710
  5. ROHYPNOL [Suspect]
     Indication: INSOMNIA
     Route: 048
     Dates: start: 20090707, end: 20090823
  6. BLONANSERIN [Concomitant]
     Indication: AFFECT LABILITY
     Dates: start: 20090710
  7. LEVOTOMIN [Concomitant]
     Indication: INSOMNIA
     Dates: start: 20090710, end: 20090711
  8. LENDORMIN [Concomitant]
     Indication: INSOMNIA
     Dates: start: 20091007

REACTIONS (1)
  - RESPIRATORY DEPRESSION [None]
